FAERS Safety Report 14963378 (Version 1)
Quarter: 2018Q2

REPORT INFORMATION
  Report Type: Spontaneous
  Country: US (occurrence: US)
  Receive Date: 20180510
  Receipt Date: 20180510
  Transmission Date: 20180711
  Serious: Yes (Death)
  Sender: FDA-Public Use
  Company Number: None

PATIENT
  Age: 77 Year
  Sex: Male
  Weight: 72.6 kg

DRUGS (2)
  1. CEFTRIAXONE. [Suspect]
     Active Substance: CEFTRIAXONE
     Indication: OSTEOMYELITIS
     Dosage: ?          OTHER FREQUENCY:NOW;?
     Route: 042
     Dates: start: 20180509, end: 20180509
  2. D5W 50 MINIBAG [Suspect]
     Active Substance: DEXTROSE
     Indication: OSTEOMYELITIS
     Dosage: ?          OTHER FREQUENCY:NOW;?
     Route: 042
     Dates: start: 20180509, end: 20180509

REACTIONS (5)
  - Feeling abnormal [None]
  - Pain [None]
  - Unresponsive to stimuli [None]
  - Agonal rhythm [None]
  - Cardio-respiratory arrest [None]

NARRATIVE: CASE EVENT DATE: 20180509
